FAERS Safety Report 4643767-X (Version None)
Quarter: 2005Q2

REPORT INFORMATION
  Report Type: 
  Country: None (occurrence: None)
  Receive Date: 20050422
  Receipt Date: 20050422
  Transmission Date: 20051028
  Serious: Yes (Other)
  Sender: FDA-Public Use
  Company Number: None

PATIENT
  Age: 72 Year
  Sex: Male
  Weight: 95.7 kg

DRUGS (17)
  1. TERAZOSIN [Suspect]
  2. METOPROLOL TARTRATE [Concomitant]
  3. GLYBURIDE [Concomitant]
  4. OMEPRAZOLE [Concomitant]
  5. OXYBUTYNIN CHLORIDE [Concomitant]
  6. SERTRALINE HCL [Concomitant]
  7. AMITRIPTYLINE HCL [Concomitant]
  8. ROSIGLITAZONE MALEATE [Concomitant]
  9. TAMSULOSIN HCL [Concomitant]
  10. FINASTERIDE [Concomitant]
  11. FENOFIBRATE [Concomitant]
  12. HYDROCODONE / ACETAMINOPHEN [Concomitant]
  13. PENTOXIFYLLINE [Concomitant]
  14. ACCU-CHEK COMFORT CURVE-H TEST STRIP [Concomitant]
  15. LANCET, TECHLITE [Concomitant]
  16. LISINOPRIL [Concomitant]
  17. SIMVASTATIN [Concomitant]

REACTIONS (1)
  - HYPOTENSION [None]
